FAERS Safety Report 19178968 (Version 2)
Quarter: 2021Q3

REPORT INFORMATION
  Report Type: Spontaneous
  Country: CA (occurrence: CA)
  Receive Date: 20210426
  Receipt Date: 20210802
  Transmission Date: 20211014
  Serious: Yes (Other)
  Sender: FDA-Public Use
  Company Number: CA-PFIZER INC-2020287333

PATIENT
  Age: 67 Year
  Sex: Female

DRUGS (10)
  1. XELJANZ [Suspect]
     Active Substance: TOFACITINIB CITRATE
     Dosage: 10 MG, 2X/DAY
     Route: 048
     Dates: start: 20210401
  2. SALOFALK [MESALAZINE] [Concomitant]
     Active Substance: MESALAMINE
     Dosage: 4 G, 2X/DAY (4G AM AND 4G PM)
  3. XELJANZ [Suspect]
     Active Substance: TOFACITINIB CITRATE
     Dosage: 5 MG, 2X/DAY
     Route: 048
     Dates: start: 2020, end: 202103
  4. XELJANZ [Suspect]
     Active Substance: TOFACITINIB CITRATE
     Dosage: 10 MG, 2X/DAY
     Route: 048
     Dates: start: 2021, end: 202107
  5. CORTIMENT [HYDROCORTISONE] [Concomitant]
     Active Substance: HYDROCORTISONE
     Dosage: 9 MG, 1X/DAY
  6. XELJANZ [Suspect]
     Active Substance: TOFACITINIB CITRATE
     Dosage: 5 MG, 2X/DAY
     Route: 048
     Dates: start: 202107
  7. PREDNISONE. [Suspect]
     Active Substance: PREDNISONE
     Dosage: UNK
  8. XELJANZ [Suspect]
     Active Substance: TOFACITINIB CITRATE
     Dosage: 5 MG, 2X/DAY
     Route: 048
     Dates: start: 2020, end: 2021
  9. XELJANZ [Suspect]
     Active Substance: TOFACITINIB CITRATE
     Indication: COLITIS ULCERATIVE
     Dosage: 10 MG, 2X/DAY
     Route: 048
     Dates: start: 20200714, end: 2020
  10. TECTA [Concomitant]
     Active Substance: PANTOPRAZOLE MAGNESIUM
     Dosage: 1 DF

REACTIONS (16)
  - Discomfort [Unknown]
  - Fatigue [Recovered/Resolved]
  - Hypoaesthesia [Recovering/Resolving]
  - Paraesthesia [Recovering/Resolving]
  - Loss of personal independence in daily activities [Not Recovered/Not Resolved]
  - Condition aggravated [Recovering/Resolving]
  - Abdominal pain upper [Recovered/Resolved]
  - Circumstance or information capable of leading to medication error [Unknown]
  - Arthralgia [Recovered/Resolved]
  - Discouragement [Unknown]
  - Back pain [Recovered/Resolved]
  - Pain in extremity [Recovered/Resolved]
  - Drug ineffective [Unknown]
  - Flatulence [Not Recovered/Not Resolved]
  - Condition aggravated [Not Recovered/Not Resolved]
  - Insomnia [Recovering/Resolving]

NARRATIVE: CASE EVENT DATE: 2020
